FAERS Safety Report 8563843-9 (Version None)
Quarter: 2012Q3

REPORT INFORMATION
  Report Type: 
  Country: None (occurrence: None)
  Receive Date: 20120727
  Receipt Date: 20120727
  Transmission Date: 20120928
  Serious: Yes (Hospitalization)
  Sender: FDA-Public Use
  Company Number: None

PATIENT
  Age: 46 Year
  Sex: Male
  Weight: 67.5 kg

DRUGS (9)
  1. LASIX [Concomitant]
  2. LOVENOX [Suspect]
     Indication: PROPHYLAXIS
     Dosage: 40 MG Q24HR SQ RECENT
  3. ASPIRIN [Suspect]
     Indication: CARDIAC FAILURE
     Dosage: 325MG DAILY PO RECENT
     Route: 048
  4. CELEXA [Concomitant]
  5. APAP W/ CODEINE [Concomitant]
  6. ALBUTEROL [Concomitant]
  7. KETOROLAC TROMETHAMINE [Suspect]
     Indication: PAIN
     Dosage: RECENT
  8. MELOXICAM [Suspect]
     Indication: ARTHRITIS
     Dosage: CHRONIC
  9. TRAVOPROST [Concomitant]

REACTIONS (4)
  - ACUTE RESPIRATORY FAILURE [None]
  - MELAENA [None]
  - HAEMOGLOBIN DECREASED [None]
  - UPPER GASTROINTESTINAL HAEMORRHAGE [None]
